FAERS Safety Report 9011741 (Version 1)
Quarter: 2013Q1

REPORT INFORMATION
  Report Type: Spontaneous
  Country: DE (occurrence: DE)
  Receive Date: 20130114
  Receipt Date: 20130114
  Transmission Date: 20140127
  Serious: Yes (Other)
  Sender: FDA-Public Use
  Company Number: DE-009507513-1301DEU003304

PATIENT
  Sex: Female

DRUGS (1)
  1. ZIENAM 500 [Suspect]
     Indication: PNEUMONIA
     Dosage: UNK
     Route: 042

REACTIONS (2)
  - Extubation [Not Recovered/Not Resolved]
  - Deafness [Not Recovered/Not Resolved]
